FAERS Safety Report 15276786 (Version 1)
Quarter: 2018Q3

REPORT INFORMATION
  Report Type: Spontaneous
  Country: US (occurrence: US)
  Receive Date: 20180729
  Receipt Date: 20180729
  Transmission Date: 20181010
  Serious: Yes (Other)
  Sender: FDA-Public Use
  Company Number: None

PATIENT
  Age: 51 Year
  Sex: Male
  Weight: 173 kg

DRUGS (2)
  1. ABILIFY [Concomitant]
     Active Substance: ARIPIPRAZOLE
     Dates: start: 20180529, end: 20180722
  2. ABILIFY [Suspect]
     Active Substance: ARIPIPRAZOLE
     Indication: PSYCHOTIC DISORDER
     Dosage: ?          OTHER ROUTE:FEEDING TUBE?
     Dates: start: 20180529, end: 20180722

REACTIONS (2)
  - Drug interaction [None]
  - Tardive dyskinesia [None]

NARRATIVE: CASE EVENT DATE: 20180717
